FAERS Safety Report 6986104-8 (Version None)
Quarter: 2010Q3

REPORT INFORMATION
  Report Type: 
  Country: None (occurrence: None)
  Receive Date: 20100910
  Receipt Date: 20100826
  Transmission Date: 20110219
  Serious: Yes (Hospitalization)
  Sender: FDA-Public Use
  Company Number: DSJ-2010-14804

PATIENT
  Age: 55 Year
  Sex: Female

DRUGS (2)
  1. OLMESARTAN (OLMESARTAN) (TABLET) (OLMESARTAN) [Suspect]
     Indication: SUICIDE ATTEMPT
     Dosage: 180 MG, PER ORAL
     Route: 048
  2. NORVASC [Suspect]
     Indication: SUICIDE ATTEMPT
     Dosage: 140 MG, PER ORAL
     Route: 048

REACTIONS (4)
  - DRUG TOXICITY [None]
  - HYPOTENSION [None]
  - OVERDOSE [None]
  - SUICIDE ATTEMPT [None]
